FAERS Safety Report 6744676-2 (Version None)
Quarter: 2010Q2

REPORT INFORMATION
  Report Type: 
  Country: None (occurrence: None)
  Receive Date: 20100527
  Receipt Date: 20100517
  Transmission Date: 20101027
  Serious: Yes (Other)
  Sender: FDA-Public Use
  Company Number: PHHY2010US31959

PATIENT
  Sex: Female

DRUGS (1)
  1. VALTURNA [Suspect]

REACTIONS (3)
  - DIZZINESS [None]
  - HEART RATE DECREASED [None]
  - HEART VALVE INCOMPETENCE [None]
